FAERS Safety Report 5179627-8 (Version None)
Quarter: 2006Q4

REPORT INFORMATION
  Report Type: 
  Country: None (occurrence: None)
  Receive Date: 20061219
  Receipt Date: 20060823
  Transmission Date: 20070319
  Serious: Yes (Hospitalization)
  Sender: FDA-Public Use
  Company Number: US-ELI_LILLY_AND_COMPANY-US200608005320

PATIENT
  Age: 83 Year
  Sex: Female
  Weight: 57.142 kg

DRUGS (15)
  1. PREDNISONE TAB [Concomitant]
  2. LASIX [Concomitant]
  3. LIPITOR [Concomitant]
  4. FORTEO [Suspect]
     Indication: OSTEOPOROSIS
     Dosage: UNK, UNK
     Dates: start: 20051001
  5. COREG [Concomitant]
  6. ATACAND                                 /SWE/ [Concomitant]
  7. DILTIAZEM HCL [Concomitant]
  8. POTASSIUM ACETATE [Concomitant]
  9. PLAQUENIL [Concomitant]
  10. TORSEMIDE [Concomitant]
  11. COUMADIN [Concomitant]
  12. DISALCID [Concomitant]
  13. SYNTHROID [Concomitant]
  14. PREVACID [Concomitant]
  15. CALCIUM [Concomitant]

REACTIONS (4)
  - BALANCE DISORDER [None]
  - FALL [None]
  - PHARMACEUTICAL PRODUCT COMPLAINT [None]
  - RADIUS FRACTURE [None]
